FAERS Safety Report 9858906 (Version 1)
Quarter: 2014Q1

REPORT INFORMATION
  Report Type: Spontaneous
  Country: US (occurrence: US)
  Receive Date: 20140131
  Receipt Date: 20140131
  Transmission Date: 20141002
  Serious: Yes (Death)
  Sender: FDA-Public Use
  Company Number: CHPA2014US001703

PATIENT
  Age: 25 Year
  Sex: Male

DRUGS (4)
  1. DIPHENHYDRAMINE [Suspect]
     Dosage: UNK
  2. BUPROPION [Suspect]
  3. FLUOXETINE [Suspect]
  4. ETHANOL [Suspect]

REACTIONS (1)
  - Completed suicide [Fatal]
